FAERS Safety Report 7253753-1 (Version None)
Quarter: 2011Q1

REPORT INFORMATION
  Report Type: 
  Country: None (occurrence: None)
  Receive Date: 20110129
  Receipt Date: 20100203
  Transmission Date: 20110831
  Serious: No
  Sender: FDA-Public Use
  Company Number: US-ABBOTT-10P-163-0623804-00

PATIENT
  Sex: Male
  Weight: 73.548 kg

DRUGS (1)
  1. HUMIRA [Suspect]
     Indication: CROHN'S DISEASE
     Dates: start: 20090901

REACTIONS (8)
  - INFLUENZA LIKE ILLNESS [None]
  - DYSPHONIA [None]
  - LUPUS-LIKE SYNDROME [None]
  - DYSPNOEA [None]
  - APHONIA [None]
  - CHEST PAIN [None]
  - FATIGUE [None]
  - COUGH [None]
